FAERS Safety Report 8264746-X (Version None)
Quarter: 2012Q2

REPORT INFORMATION
  Report Type: 
  Country: None (occurrence: None)
  Receive Date: 20120406
  Receipt Date: 20120330
  Transmission Date: 20120825
  Serious: Yes (Hospitalization)
  Sender: FDA-Public Use
  Company Number: US-BRISTOL-MYERS SQUIBB COMPANY-16492415

PATIENT
  Age: 65 Year
  Sex: Female
  Weight: 62 kg

DRUGS (11)
  1. DEXAMETHASONE [Concomitant]
  2. PANTOPRAZOLE [Concomitant]
  3. ROSUVASTATIN [Concomitant]
  4. RALTEGRAVIR [Concomitant]
  5. REYATAZ [Suspect]
  6. DOCUSATE [Concomitant]
  7. BUPROPION HCL [Concomitant]
  8. OLANZAPINE [Concomitant]
  9. SENNA [Concomitant]
  10. CEFAZOLIN [Concomitant]
  11. RITONAVIR [Concomitant]

REACTIONS (1)
  - NEUROLOGICAL SYMPTOM [None]
